FAERS Safety Report 6531080-5 (Version None)
Quarter: 2010Q1

REPORT INFORMATION
  Report Type: 
  Country: None (occurrence: None)
  Receive Date: 20100108
  Receipt Date: 20091229
  Transmission Date: 20100710
  Serious: Yes (Other)
  Sender: FDA-Public Use
  Company Number: US-JNJFOC-20091207853

PATIENT
  Sex: Female
  Weight: 54.43 kg

DRUGS (7)
  1. SIMPONI [Suspect]
     Indication: RHEUMATOID ARTHRITIS
     Route: 058
  2. PREDNISONE [Concomitant]
  3. HYDROCHLOROTHIAZIDE [Concomitant]
  4. SPIRONOLACTONE [Concomitant]
  5. SOMA [Concomitant]
  6. ASPIRIN [Concomitant]
  7. HYDROCODONE BITARTRATE [Concomitant]

REACTIONS (3)
  - DEVICE FAILURE [None]
  - HIP ARTHROPLASTY [None]
  - INAPPROPRIATE SCHEDULE OF DRUG ADMINISTRATION [None]
